FAERS Safety Report 8740580 (Version 2)
Quarter: 2013Q4

REPORT INFORMATION
  Report Type: Spontaneous
  Country: US (occurrence: US)
  Receive Date: 20120823
  Receipt Date: 20131101
  Transmission Date: 20140711
  Serious: No
  Sender: FDA-Public Use
  Company Number: US-009507513-1208USA008362

PATIENT
  Sex: Female

DRUGS (2)
  1. JANUVIA [Suspect]
     Dosage: UNK DF, UNK
     Route: 048
  2. METFORMIN [Suspect]

REACTIONS (2)
  - Ageusia [Unknown]
  - Hypoaesthesia oral [Unknown]
